FAERS Safety Report 8162301-3 (Version None)
Quarter: 2012Q1

REPORT INFORMATION
  Report Type: 
  Country: None (occurrence: None)
  Receive Date: 20120221
  Receipt Date: 20120215
  Transmission Date: 20120608
  Serious: Yes (Other)
  Sender: FDA-Public Use
  Company Number: A0966002A

PATIENT
  Age: 59 Year
  Sex: Male

DRUGS (1)
  1. METHYLCELLULOSE (FORMULATION UNKNOWN) REGULAR (METHYLCELLULOSE) [Suspect]
     Indication: PRODUCT USED FOR UNKNOWN INDICATION

REACTIONS (3)
  - CONSTIPATION [None]
  - HAEMORRHOIDS [None]
  - RECTAL HAEMORRHAGE [None]
